FAERS Safety Report 10056235 (Version 2)
Quarter: 2014Q2

REPORT INFORMATION
  Report Type: Report from Study
  Country: GB (occurrence: GB)
  Receive Date: 20140403
  Receipt Date: 20140414
  Transmission Date: 20141212
  Serious: Yes (Hospitalization)
  Sender: FDA-Public Use
  Company Number: GB-ALEXION PHARMACEUTICALS INC.-A201401012

PATIENT
  Sex: 0

DRUGS (2)
  1. SOLIRIS [Suspect]
     Indication: PAROXYSMAL NOCTURNAL HAEMOGLOBINURIA
     Dosage: 900 MG, Q2W
     Route: 042
  2. BLOOD CELLS, PACKED HUMAN [Concomitant]
     Dosage: 2 DF, UNK
     Route: 042
     Dates: start: 20140318

REACTIONS (3)
  - Fungal infection [Unknown]
  - Cellulitis [Unknown]
  - Peripheral swelling [Unknown]
